FAERS Safety Report 22260457 (Version 1)
Quarter: 2023Q2

REPORT INFORMATION
  Report Type: Spontaneous
  Country: US (occurrence: US)
  Receive Date: 20230427
  Receipt Date: 20230427
  Transmission Date: 20230721
  Serious: Yes (Hospitalization)
  Sender: FDA-Public Use
  Company Number: US-JUBILANT CADISTA PHARMACEUTICALS-2023JUB00176

PATIENT
  Sex: Female

DRUGS (3)
  1. PREDNISONE [Suspect]
     Active Substance: PREDNISONE
     Indication: Crohn^s disease
     Dosage: 20 MG, 1X/DAY
  2. PAXLOVID [Suspect]
     Active Substance: NIRMATRELVIR\RITONAVIR
     Indication: COVID-19
     Dosage: UNK
     Dates: start: 20230405, end: 20230405
  3. IRON [Concomitant]
     Active Substance: IRON

REACTIONS (13)
  - Pneumonia [Unknown]
  - Hospitalisation [Unknown]
  - COVID-19 [Unknown]
  - Crohn^s disease [Unknown]
  - Weight decreased [Not Recovered/Not Resolved]
  - Fall [Recovering/Resolving]
  - Palpitations [Recovered/Resolved]
  - Eye movement disorder [Recovering/Resolving]
  - Dizziness [Recovering/Resolving]
  - Dysstasia [Recovering/Resolving]
  - Tremor [Unknown]
  - Blood iron decreased [Unknown]
  - Off label use [Unknown]

NARRATIVE: CASE EVENT DATE: 20230101
